FAERS Safety Report 4572716-8 (Version None)
Quarter: 2005Q1

REPORT INFORMATION
  Report Type: 
  Country: None (occurrence: None)
  Receive Date: 20050208
  Receipt Date: 20041209
  Transmission Date: 20050727
  Serious: No
  Sender: FDA-Public Use
  Company Number: US-GLAXOSMITHKLINE-A0536802A

PATIENT
  Age: 29 Year
  Sex: Female

DRUGS (2)
  1. PAXIL [Suspect]
     Dosage: 37.5MG PER DAY
     Route: 048
     Dates: start: 20040101
  2. SYNTHROID [Concomitant]

REACTIONS (3)
  - FEELING ABNORMAL [None]
  - HEADACHE [None]
  - PARAESTHESIA [None]
